FAERS Safety Report 16200200 (Version 2)
Quarter: 2019Q2

REPORT INFORMATION
  Report Type: Spontaneous
  Country: US (occurrence: US)
  Receive Date: 20190415
  Receipt Date: 20190624
  Transmission Date: 20190711
  Serious: No
  Sender: FDA-Public Use
  Company Number: US-SA-2019SA103417

PATIENT
  Age: 78 Year
  Sex: Female

DRUGS (2)
  1. PRALUENT [Suspect]
     Active Substance: ALIROCUMAB
     Dosage: 75 MG, QOW
     Dates: start: 201703
  2. PRALUENT [Suspect]
     Active Substance: ALIROCUMAB
     Dosage: 75 MG, QM

REACTIONS (6)
  - Injection site pruritus [Unknown]
  - Injection site inflammation [Unknown]
  - Intentional product misuse [Unknown]
  - Injection site erythema [Unknown]
  - Injection site mass [Unknown]
  - Injection site warmth [Unknown]

NARRATIVE: CASE EVENT DATE: 2019
